FAERS Safety Report 7471731-4 (Version None)
Quarter: 2011Q2

REPORT INFORMATION
  Report Type: 
  Country: None (occurrence: None)
  Receive Date: 20110511
  Receipt Date: 20100506
  Transmission Date: 20111010
  Serious: No
  Sender: FDA-Public Use
  Company Number: A0834856A

PATIENT
  Age: 42 Year
  Sex: Female

DRUGS (1)
  1. TYKERB [Suspect]
     Route: 048
     Dates: start: 20091125

REACTIONS (14)
  - GASTRIC DISORDER [None]
  - NAUSEA [None]
  - DYSSTASIA [None]
  - DERMATITIS ACNEIFORM [None]
  - DIARRHOEA [None]
  - DYSGEUSIA [None]
  - FATIGUE [None]
  - DIZZINESS [None]
  - RASH PRURITIC [None]
  - GASTROINTESTINAL SOUNDS ABNORMAL [None]
  - ASTHENIA [None]
  - MOVEMENT DISORDER [None]
  - RASH [None]
  - BONE PAIN [None]
